FAERS Safety Report 5829096-7 (Version None)
Quarter: 2008Q3

REPORT INFORMATION
  Report Type: 
  Country: None (occurrence: None)
  Receive Date: 20080731
  Receipt Date: 20080723
  Transmission Date: 20090109
  Serious: Yes (Other)
  Sender: FDA-Public Use
  Company Number: US-JNJCH-2008019283

PATIENT
  Age: 33 Year
  Sex: Female

DRUGS (1)
  1. LISTERINE WHITENING QUICK DISSOLVING STRIPS [Suspect]
     Indication: DENTAL CARE
     Dosage: TEXT:2 STRIPS
     Route: 048
     Dates: start: 20080720, end: 20080722

REACTIONS (2)
  - BLISTER [None]
  - BURNING SENSATION [None]
